FAERS Safety Report 14156993 (Version 1)
Quarter: 2017Q4

REPORT INFORMATION
  Report Type: Spontaneous
  Country: US (occurrence: None)
  Receive Date: 20171103
  Receipt Date: 20171103
  Transmission Date: 20180321
  Serious: Yes (Other)
  Sender: FDA-Public Use
  Company Number: None

PATIENT
  Age: 36 Year
  Sex: Male
  Weight: 61.24 kg

DRUGS (1)
  1. BALSALAZIDE 750 MG [Suspect]
     Active Substance: BALSALAZIDE
     Indication: COLITIS ULCERATIVE
     Route: 048
     Dates: start: 20170928, end: 20171027

REACTIONS (5)
  - Weight decreased [None]
  - Muscle spasms [None]
  - Colitis ulcerative [None]
  - Diarrhoea [None]
  - Condition aggravated [None]

NARRATIVE: CASE EVENT DATE: 20171027
